FAERS Safety Report 24803603 (Version 2)
Quarter: 2025Q1

REPORT INFORMATION
  Report Type: Other
  Country: BR (occurrence: BR)
  Receive Date: 20250103
  Receipt Date: 20250127
  Transmission Date: 20250408
  Serious: No
  Sender: TOLMAR
  Company Number: BR-TOLMAR, INC.-24BR054813

PATIENT
  Age: 9 Year
  Sex: Female

DRUGS (5)
  1. ELIGARD [Suspect]
     Active Substance: LEUPROLIDE ACETATE
     Indication: Pubertal disorder
     Dates: start: 20240917
  2. ELIGARD [Suspect]
     Active Substance: LEUPROLIDE ACETATE
     Dates: start: 20231001
  3. ELIGARD [Suspect]
     Active Substance: LEUPROLIDE ACETATE
     Indication: Pubertal disorder
  4. OXCARBAZEPINE [Concomitant]
     Active Substance: OXCARBAZEPINE
     Indication: Product used for unknown indication
  5. VALPROATE SODIUM [Concomitant]
     Active Substance: VALPROATE SODIUM
     Indication: Product used for unknown indication

REACTIONS (2)
  - Injection site inflammation [Unknown]
  - Expulsion of medication [Recovered/Resolved]

NARRATIVE: CASE EVENT DATE: 20240917
